FAERS Safety Report 5557821-1 (Version None)
Quarter: 2007Q4

REPORT INFORMATION
  Report Type: 
  Country: None (occurrence: None)
  Receive Date: 20071214
  Receipt Date: 20071210
  Transmission Date: 20080405
  Serious: Yes (Disabling)
  Sender: FDA-Public Use
  Company Number: US-MERCK-0706USA00853

PATIENT
  Age: 61 Year
  Sex: Female

DRUGS (1)
  1. FOSAMAX [Suspect]
     Indication: OSTEOPENIA
     Route: 048
     Dates: start: 20020201, end: 20060101

REACTIONS (11)
  - ABSCESS [None]
  - ARTHRITIS [None]
  - DENTAL CARIES [None]
  - JAW DISORDER [None]
  - ORAL INFECTION [None]
  - PAIN [None]
  - PAIN IN JAW [None]
  - SWELLING [None]
  - THROMBOSIS [None]
  - TOOTH LOSS [None]
  - VARICOSE VEIN [None]
